FAERS Safety Report 5444134-1 (Version None)
Quarter: 2007Q3

REPORT INFORMATION
  Report Type: 
  Country: None (occurrence: None)
  Receive Date: 20070904
  Receipt Date: 20070827
  Transmission Date: 20080115
  Serious: Yes (Other)
  Sender: FDA-Public Use
  Company Number: S07-USA-03299-01

PATIENT
  Age: 77 Year
  Sex: Male

DRUGS (15)
  1. CELEXA [Suspect]
     Indication: COGNITIVE DISORDER
     Dosage: 40 MG QD PO
     Route: 048
     Dates: start: 20070620, end: 20070731
  2. CELEXA [Suspect]
     Indication: DEPRESSION
     Dosage: 40 MG QD PO
     Route: 048
     Dates: start: 20070620, end: 20070731
  3. CELEXA [Suspect]
     Indication: COGNITIVE DISORDER
     Dosage: 20 MG QD PO
     Route: 048
     Dates: start: 20070801
  4. CELEXA [Suspect]
     Indication: DEPRESSION
     Dosage: 20 MG QD PO
     Route: 048
     Dates: start: 20070801
  5. CELEXA [Suspect]
     Indication: COGNITIVE DISORDER
     Dosage: 20 MG QD PO
     Route: 048
     Dates: start: 20070327, end: 20070619
  6. CELEXA [Suspect]
     Indication: DEPRESSION
     Dosage: 20 MG QD PO
     Route: 048
     Dates: start: 20070327, end: 20070619
  7. LEVOXYL [Concomitant]
  8. FOLIC ACID [Concomitant]
  9. VITAMIN B6 [Concomitant]
  10. VITAMIN B12 INJECTION [Concomitant]
  11. ZANTAC 150 [Concomitant]
  12. IRON [Concomitant]
  13. LIPITOR [Concomitant]
  14. DOXEPIN HCL [Concomitant]
  15. ASPIRIN [Concomitant]

REACTIONS (1)
  - RETINAL HAEMORRHAGE [None]
